FAERS Safety Report 8005001-2 (Version None)
Quarter: 2011Q4

REPORT INFORMATION
  Report Type: 
  Country: None (occurrence: None)
  Receive Date: 20111223
  Receipt Date: 20111219
  Transmission Date: 20120403
  Serious: Yes (Hospitalization, Other)
  Sender: FDA-Public Use
  Company Number: US-JNJFOC-20111101491

PATIENT
  Sex: Female
  Weight: 81.19 kg

DRUGS (6)
  1. FENTANYL-100 [Suspect]
     Indication: MULTIPLE SCLEROSIS
     Route: 062
     Dates: start: 20101101, end: 20110101
  2. DURAGESIC-100 [Suspect]
     Indication: MULTIPLE SCLEROSIS
     Route: 062
     Dates: start: 20110901
  3. CLONAZEPAM [Concomitant]
     Indication: MUSCLE SPASMS
     Route: 048
     Dates: start: 20060101
  4. FENTANYL-100 [Suspect]
     Route: 062
     Dates: start: 20110101, end: 20110101
  5. DURAGESIC-100 [Suspect]
     Route: 062
     Dates: start: 20110101, end: 20110901
  6. AMITRIPTYLINE [Concomitant]
     Indication: SLEEP DISORDER
     Route: 065
     Dates: start: 20110601

REACTIONS (5)
  - STAPHYLOCOCCAL INFECTION [None]
  - CONDITION AGGRAVATED [None]
  - PANCREATITIS ACUTE [None]
  - PRODUCT ADHESION ISSUE [None]
  - DRUG EFFECT DECREASED [None]
